FAERS Safety Report 26014915 (Version 1)
Quarter: 2025Q4

REPORT INFORMATION
  Report Type: Spontaneous
  Country: US (occurrence: US)
  Receive Date: 20251108
  Receipt Date: 20251108
  Transmission Date: 20260118
  Serious: No
  Sender: SANOFI AVENTIS
  Company Number: US-SA-2025SA330004

PATIENT
  Age: 42 Year
  Sex: Female

DRUGS (1)
  1. DUPIXENT [Suspect]
     Active Substance: DUPILUMAB

REACTIONS (6)
  - Eating disorder [Unknown]
  - Speech disorder [Unknown]
  - Skin fissures [Unknown]
  - Skin haemorrhage [Unknown]
  - Pruritus [Unknown]
  - Malaise [Unknown]
